FAERS Safety Report 21573035 (Version 1)
Quarter: 2022Q4

REPORT INFORMATION
  Report Type: Spontaneous
  Country: US (occurrence: US)
  Receive Date: 20221109
  Receipt Date: 20221109
  Transmission Date: 20230112
  Serious: Yes (Death, Other)
  Sender: FDA-Public Use
  Company Number: US-PFIZER INC-2020394509

PATIENT
  Age: 76 Year
  Sex: Male
  Weight: 95.25 kg

DRUGS (11)
  1. VYNDAMAX [Suspect]
     Active Substance: TAFAMIDIS
     Indication: Amyloidosis
     Dosage: 61 MG, DAILY
     Dates: end: 20201010
  2. VYNDAMAX [Suspect]
     Active Substance: TAFAMIDIS
     Indication: Cardiac failure congestive
     Dosage: 61 MG, 1X/DAY
  3. AMIODARONE [Concomitant]
     Active Substance: AMIODARONE
     Indication: Cardiac disorder
     Dosage: 200 MG, 1X/DAY
  4. AMIODARONE [Concomitant]
     Active Substance: AMIODARONE
     Indication: Blood pressure abnormal
  5. ENTRESTO [Concomitant]
     Active Substance: SACUBITRIL\VALSARTAN
     Indication: Cardiac failure congestive
     Dosage: 0.5 MG, 2X/DAY (1/2 TABLET IN THE MORNING AND 1/2 TABLET IN THE EVENING)
  6. POTASSIUM [Concomitant]
     Active Substance: POTASSIUM
     Dosage: 20 MEQ, 1X/DAY
  7. LOPRESSOR [Concomitant]
     Active Substance: METOPROLOL TARTRATE
     Dosage: 25 MG, 1X/DAY
  8. LIPITOR [Concomitant]
     Active Substance: ATORVASTATIN CALCIUM
     Dosage: 40 MG, 1X/DAY
  9. BUMEX [Concomitant]
     Active Substance: BUMETANIDE
     Indication: Blood pressure abnormal
     Dosage: 1 MG, 1X/DAY
  10. BUMEX [Concomitant]
     Active Substance: BUMETANIDE
     Dosage: 2 MG, ALTERNATE DAY
  11. LASIX [Concomitant]
     Active Substance: FUROSEMIDE
     Dosage: 60 MG, 1X/DAY
     Dates: start: 2021

REACTIONS (2)
  - Death [Fatal]
  - Off label use [Unknown]

NARRATIVE: CASE EVENT DATE: 20221029
